FAERS Safety Report 23507622 (Version 1)
Quarter: 2024Q1

REPORT INFORMATION
  Report Type: Spontaneous
  Country: AU (occurrence: None)
  Receive Date: 20240209
  Receipt Date: 20240209
  Transmission Date: 20240409
  Serious: Yes (Hospitalization)
  Sender: FDA-Public Use
  Company Number: 2024A028272

PATIENT
  Age: 29220 Day
  Sex: Female

DRUGS (1)
  1. OSIMERTINIB [Suspect]
     Active Substance: OSIMERTINIB
     Indication: Lung neoplasm malignant
     Route: 048

REACTIONS (5)
  - Weight decreased [Unknown]
  - Fatigue [Unknown]
  - Pneumonitis [Unknown]
  - Cough [Unknown]
  - Dyspnoea [Unknown]
